FAERS Safety Report 8547547-4 (Version None)
Quarter: 2012Q3

REPORT INFORMATION
  Report Type: 
  Country: None (occurrence: None)
  Receive Date: 20120727
  Receipt Date: 20120330
  Transmission Date: 20120928
  Serious: No
  Sender: FDA-Public Use
  Company Number: US-ASTRAZENECA-2012SE21644

PATIENT
  Age: 26 Year
  Sex: Female
  Weight: 54.4 kg

DRUGS (4)
  1. LITHIUM CARBONATE [Concomitant]
     Indication: BIPOLAR DISORDER
     Dosage: 200 MG HS, 100 MG QAM
  2. CLONAZEPAM [Concomitant]
     Indication: ANXIETY
     Dosage: 1-3 MG AS NEEDED
  3. SEROQUEL [Suspect]
     Indication: ANXIETY
     Dosage: 200 MG AT NIGHT , 100 MG DURING THE DAY IF NEEDED
     Route: 048
     Dates: start: 20100101
  4. SEROQUEL [Suspect]
     Indication: BIPOLAR DISORDER
     Dosage: 200 MG AT NIGHT , 100 MG DURING THE DAY IF NEEDED
     Route: 048
     Dates: start: 20100101

REACTIONS (2)
  - INSOMNIA [None]
  - INTENTIONAL DRUG MISUSE [None]
